FAERS Safety Report 8237890-0 (Version None)
Quarter: 2012Q1

REPORT INFORMATION
  Report Type: 
  Country: None (occurrence: None)
  Receive Date: 20120327
  Receipt Date: 20120206
  Transmission Date: 20120608
  Serious: No
  Sender: FDA-Public Use
  Company Number: US-B.I. PHARMACEUTICALS,INC./RIDGEFIELD-2012-BP-02290BP

PATIENT
  Age: 73 Year
  Sex: Male

DRUGS (2)
  1. RANITIDINE [Concomitant]
     Indication: GASTRIC ULCER
  2. PRADAXA [Suspect]
     Indication: ATRIAL FIBRILLATION
     Dosage: 300 MG
     Route: 048
     Dates: start: 20111201

REACTIONS (2)
  - BURNING SENSATION [None]
  - HAEMATOCHEZIA [None]
